FAERS Safety Report 7345670-3 (Version None)
Quarter: 2011Q1

REPORT INFORMATION
  Report Type: 
  Country: None (occurrence: None)
  Receive Date: 20110310
  Receipt Date: 20110303
  Transmission Date: 20110831
  Serious: Yes (Other)
  Sender: FDA-Public Use
  Company Number: B0701799A

PATIENT
  Sex: Male

DRUGS (1)
  1. LAMICTAL [Suspect]
     Indication: GRAND MAL CONVULSION
     Dosage: 5MG PER DAY
     Route: 048

REACTIONS (3)
  - HAEMOGLOBIN DECREASED [None]
  - MELAENA [None]
  - HAEMATOCRIT DECREASED [None]
